FAERS Safety Report 10346253 (Version 2)
Quarter: 2014Q4

REPORT INFORMATION
  Report Type: Spontaneous
  Country: DE (occurrence: DE)
  Receive Date: 20140728
  Receipt Date: 20141024
  Transmission Date: 20150528
  Serious: Yes (Life-Threatening, Hospitalization, Other)
  Sender: FDA-Public Use
  Company Number: DE-ABBVIE-14P-062-1264784-00

PATIENT
  Age: 71 Year
  Sex: Female
  Weight: 64 kg

DRUGS (14)
  1. HUMIRA [Suspect]
     Active Substance: ADALIMUMAB
     Indication: PSORIATIC ARTHROPATHY
     Route: 058
     Dates: start: 20100708, end: 201405
  2. CLEXANE [Concomitant]
     Active Substance: ENOXAPARIN SODIUM
     Indication: PRODUCT USED FOR UNKNOWN INDICATION
     Dosage: 0-0-1
     Route: 058
  3. PREDNISOLONE. [Concomitant]
     Active Substance: PREDNISOLONE
     Indication: PSORIATIC ARTHROPATHY
     Dosage: 1-0-0
  4. METOHEXAL [Concomitant]
     Active Substance: METOPROLOL SUCCINATE
     Indication: PRODUCT USED FOR UNKNOWN INDICATION
     Dosage: 1-0-1
  5. CALCILAC [Concomitant]
     Active Substance: CALCIUM CARBONATE
     Indication: PRODUCT USED FOR UNKNOWN INDICATION
     Dosage: 0-1-0
  6. PRADAXA [Concomitant]
     Active Substance: DABIGATRAN ETEXILATE MESYLATE
     Indication: PRODUCT USED FOR UNKNOWN INDICATION
  7. FALITHROM [Concomitant]
     Active Substance: PHENPROCOUMON
     Indication: ATRIAL FIBRILLATION
     Dates: start: 201404, end: 201407
  8. PLAVIX [Concomitant]
     Active Substance: CLOPIDOGREL BISULFATE
     Indication: PRODUCT USED FOR UNKNOWN INDICATION
  9. MIRTAZAPINE. [Concomitant]
     Active Substance: MIRTAZAPINE
     Indication: PRODUCT USED FOR UNKNOWN INDICATION
     Dosage: 0-0-1
  10. FALITHROM [Concomitant]
     Active Substance: PHENPROCOUMON
     Indication: ATRIAL FIBRILLATION
     Dates: start: 201404, end: 201407
  11. DELIX [Concomitant]
     Active Substance: RAMIPRIL
     Indication: PRODUCT USED FOR UNKNOWN INDICATION
     Dosage: 1-0-1
  12. PLAVIX [Concomitant]
     Active Substance: CLOPIDOGREL BISULFATE
     Indication: PRODUCT USED FOR UNKNOWN INDICATION
     Dosage: 1-0-0
  13. PANTOZOL [Concomitant]
     Active Substance: PANTOPRAZOLE SODIUM
     Indication: PRODUCT USED FOR UNKNOWN INDICATION
     Dosage: 1-0-0
  14. SIMVAHEXAL [Concomitant]
     Active Substance: SIMVASTATIN
     Indication: PRODUCT USED FOR UNKNOWN INDICATION
     Dosage: 0-0-1

REACTIONS (39)
  - Hypertension [Unknown]
  - Respiratory acidosis [Unknown]
  - Urinary incontinence [Not Recovered/Not Resolved]
  - Nitrite urine present [Unknown]
  - Acute myocardial infarction [Unknown]
  - Oedema peripheral [Unknown]
  - Erythema [Unknown]
  - Toxic epidermal necrolysis [Recovered/Resolved with Sequelae]
  - Hypertension [Unknown]
  - Coronary arterial stent insertion [Unknown]
  - Abdominal pain lower [Unknown]
  - Balance disorder [Unknown]
  - Urosepsis [Unknown]
  - Atrial fibrillation [Unknown]
  - Urinary tract infection [Unknown]
  - Decubitus ulcer [Not Recovered/Not Resolved]
  - Arthralgia [Unknown]
  - Rash [Unknown]
  - Dysstasia [Unknown]
  - Toxic shock syndrome [Recovered/Resolved with Sequelae]
  - Muscle tightness [Unknown]
  - Critical illness polyneuropathy [Unknown]
  - Nausea [Unknown]
  - Paresis [Unknown]
  - Thrombophlebitis [Unknown]
  - Nocturia [Unknown]
  - Kyphosis [Unknown]
  - Blood lactic acid increased [Unknown]
  - Gait disturbance [Unknown]
  - Pneumonia [Unknown]
  - Coronary artery disease [Unknown]
  - Vomiting [Unknown]
  - Pyrexia [Unknown]
  - Periphlebitis [Unknown]
  - Hypothyroidism [Unknown]
  - Haemoglobin decreased [Unknown]
  - Decubitus ulcer [Recovered/Resolved]
  - Acute kidney injury [Unknown]
  - Hyperlipidaemia [Unknown]

NARRATIVE: CASE EVENT DATE: 2014
